FAERS Safety Report 5206605-2 (Version None)
Quarter: 2006Q4

REPORT INFORMATION
  Report Type: 
  Country: None (occurrence: None)
  Receive Date: 20061026
  Receipt Date: 20060713
  Transmission Date: 20070319
  Serious: No
  Sender: FDA-Public Use
  Company Number: 2006089943

PATIENT
  Age: 41 Year
  Sex: Female
  Weight: 123.3784 kg

DRUGS (7)
  1. LYRICA [Suspect]
     Indication: PAIN
     Dosage: 50 MG (50 MG, 1 IN1  D)
     Dates: start: 20060401, end: 20060705
  2. PROZAC [Concomitant]
  3. NORCO [Concomitant]
  4. WELLBUTRIN (BUPRIOPION HYDROCHLORIDE) [Concomitant]
  5. TEGRETOL [Concomitant]
  6. ELAVIL [Concomitant]
  7. PREVACID [Concomitant]

REACTIONS (5)
  - ARTHRALGIA [None]
  - COGNITIVE DISORDER [None]
  - MEMORY IMPAIRMENT [None]
  - NEUROLOGICAL EXAMINATION ABNORMAL [None]
  - SEDATION [None]
